FAERS Safety Report 19758431 (Version 2)
Quarter: 2021Q3

REPORT INFORMATION
  Report Type: Spontaneous
  Country: CO (occurrence: CO)
  Receive Date: 20210828
  Receipt Date: 20210901
  Transmission Date: 20211014
  Serious: Yes (Other)
  Sender: FDA-Public Use
  Company Number: NVSC2021CO191169

PATIENT
  Age: 43 Year

DRUGS (1)
  1. NILOTINIB [Suspect]
     Active Substance: NILOTINIB
     Indication: CHRONIC MYELOID LEUKAEMIA
     Dosage: 300 MG, BID
     Route: 048
     Dates: start: 20190620, end: 20200120

REACTIONS (4)
  - Malignant neoplasm progression [Unknown]
  - Product administration error [Unknown]
  - Drug ineffective [Unknown]
  - Chronic myeloid leukaemia [Unknown]
